FAERS Safety Report 8219228-8 (Version None)
Quarter: 2012Q1

REPORT INFORMATION
  Report Type: 
  Country: None (occurrence: None)
  Receive Date: 20120319
  Receipt Date: 20120308
  Transmission Date: 20120608
  Serious: Yes (Hospitalization)
  Sender: FDA-Public Use
  Company Number: US-JNJFOC-20120302658

PATIENT
  Sex: Male
  Weight: 82.1 kg

DRUGS (3)
  1. REMICADE [Suspect]
     Indication: INFLAMMATORY BOWEL DISEASE
     Route: 042
     Dates: start: 20071108
  2. PREVACID [Concomitant]
  3. IBUPROFEN (ADVIL) [Concomitant]

REACTIONS (1)
  - MENINGITIS BACTERIAL [None]
